FAERS Safety Report 23600574 (Version 1)
Quarter: 2024Q1

REPORT INFORMATION
  Report Type: Spontaneous
  Country: DE (occurrence: DE)
  Receive Date: 20240306
  Receipt Date: 20240306
  Transmission Date: 20240409
  Serious: Yes (Other)
  Sender: FDA-Public Use
  Company Number: DE-CELLTRION INC.-2024DE005152

PATIENT

DRUGS (9)
  1. INFLIXIMAB [Suspect]
     Active Substance: INFLIXIMAB
     Indication: Product used for unknown indication
     Dosage: 5 MG, 0.25 WEEK
     Route: 042
     Dates: start: 202101
  2. HUMIRA [Suspect]
     Active Substance: ADALIMUMAB
     Indication: Crohn^s disease
     Dosage: 40 MG, EVERY 14 DAYS
     Route: 058
     Dates: start: 201802
  3. IRON [IRON DEXTRAN] [Concomitant]
     Indication: Product used for unknown indication
  4. VITAMIN D3 [Concomitant]
     Active Substance: CHOLECALCIFEROL
     Indication: Product used for unknown indication
  5. HEPARIN [Concomitant]
     Active Substance: HEPARIN SODIUM
     Indication: Product used for unknown indication
     Route: 058
  6. AZATHIOPRINE [Concomitant]
     Active Substance: AZATHIOPRINE
     Indication: Product used for unknown indication
     Dosage: 2.5 MG
  7. MESALAMINE [Concomitant]
     Active Substance: MESALAMINE
     Indication: Product used for unknown indication
     Dosage: 1.5 G, EVERY 1 DAY
  8. METAMIZOLE [Concomitant]
     Active Substance: METAMIZOLE
     Indication: Product used for unknown indication
     Dosage: 500 MG
  9. METRONIDAZOLE [METRONIDAZOLE SODIUM] [Concomitant]
     Indication: Product used for unknown indication
     Dosage: 400 MG

REACTIONS (12)
  - Ileal ulcer [Unknown]
  - Gastrointestinal oedema [Not Recovered/Not Resolved]
  - Large intestine erosion [Unknown]
  - Iron deficiency [Unknown]
  - Abnormal faeces [Recovered/Resolved]
  - Frequent bowel movements [Unknown]
  - Aphthous ulcer [Unknown]
  - Abdominal pain lower [Unknown]
  - Pyrexia [Recovered/Resolved]
  - Nausea [Recovered/Resolved]
  - Weight decreased [Unknown]
  - Abdominal pain [Recovered/Resolved]

NARRATIVE: CASE EVENT DATE: 20200701
